FAERS Safety Report 5761477-2 (Version None)
Quarter: 2008Q2

REPORT INFORMATION
  Report Type: 
  Country: None (occurrence: None)
  Receive Date: 20080606
  Receipt Date: 20080602
  Transmission Date: 20081010
  Serious: Yes (Hospitalization)
  Sender: FDA-Public Use
  Company Number: FR-BOEHRINGER INGELHEIM GMBH, GERMANY-2008-BP-08786RO

PATIENT
  Age: 72 Year
  Sex: Male

DRUGS (6)
  1. METHOTREXATE [Suspect]
     Indication: COLITIS ULCERATIVE
     Route: 058
     Dates: start: 20050121, end: 20050128
  2. FOLIC ACID [Suspect]
     Route: 048
  3. LEUCOVORIN CALCIUM [Concomitant]
     Indication: PANCYTOPENIA
  4. NEUPOGEN [Concomitant]
     Indication: PANCYTOPENIA
  5. TAZOCILLINE [Concomitant]
     Indication: PANCYTOPENIA
  6. GENTALLINE [Concomitant]
     Indication: PANCYTOPENIA

REACTIONS (3)
  - CYTOMEGALOVIRUS INFECTION [None]
  - PANCYTOPENIA [None]
  - PNEUMONIA KLEBSIELLA [None]
